FAERS Safety Report 4708544-X (Version None)
Quarter: 2005Q3

REPORT INFORMATION
  Report Type: 
  Country: None (occurrence: None)
  Receive Date: 20050707
  Receipt Date: 20050624
  Transmission Date: 20060218
  Serious: Yes (Death, Hospitalization)
  Sender: FDA-Public Use
  Company Number: FR-GLAXOSMITHKLINE-B0386638A

PATIENT
  Age: 25 Year
  Sex: Female
  Weight: 55 kg

DRUGS (4)
  1. ALKERAN [Suspect]
     Dosage: 200MG SINGLE DOSE
     Route: 042
     Dates: start: 20030331, end: 20030331
  2. MYLERAN [Suspect]
     Dosage: 240MG PER DAY
     Route: 048
     Dates: start: 20030327, end: 20030330
  3. IDARUBICINE [Concomitant]
     Route: 065
  4. ARACYTINE [Concomitant]
     Route: 065

REACTIONS (18)
  - ALVEOLITIS [None]
  - APLASIA [None]
  - BRONCHIAL OBSTRUCTION [None]
  - BRONCHIOLITIS [None]
  - BRONCHOSPASM [None]
  - CACHEXIA [None]
  - CHEST X-RAY ABNORMAL [None]
  - DYSPNOEA EXERTIONAL [None]
  - FORCED EXPIRATORY VOLUME DECREASED [None]
  - HYPERCAPNIA [None]
  - HYPERTHERMIA [None]
  - HYPOVENTILATION [None]
  - HYPOXIA [None]
  - LUNG CONSOLIDATION [None]
  - LUNG DISORDER [None]
  - RESPIRATORY DISORDER [None]
  - RESPIRATORY FAILURE [None]
  - SUPERINFECTION LUNG [None]
